FAERS Safety Report 5843520-5 (Version None)
Quarter: 2008Q3

REPORT INFORMATION
  Report Type: 
  Country: None (occurrence: None)
  Receive Date: 20080813
  Receipt Date: 20080806
  Transmission Date: 20090109
  Serious: Yes (Death, Other)
  Sender: FDA-Public Use
  Company Number: US-ROCHE-579676

PATIENT
  Sex: Female
  Weight: 44.5 kg

DRUGS (6)
  1. CAPECITABINE [Suspect]
     Indication: GALLBLADDER CANCER METASTATIC
     Dosage: 1500 MG AM AND 1500 MG PM.
     Route: 048
     Dates: start: 20080716
  2. ZOFRAN [Concomitant]
  3. AMBIEN [Concomitant]
  4. POTASSIUM CHLORIDE [Concomitant]
  5. MORPHINE [Concomitant]
  6. VICODIN [Concomitant]

REACTIONS (2)
  - COMA [None]
  - DEATH [None]
